FAERS Safety Report 20099507 (Version 1)
Quarter: 2021Q4

REPORT INFORMATION
  Report Type: Report from Study
  Country: DE (occurrence: DE)
  Receive Date: 20211123
  Receipt Date: 20211123
  Transmission Date: 20220303
  Serious: Yes (Hospitalization, Other)
  Sender: FDA-Public Use
  Company Number: DE-ABBVIE-21K-062-4134182-00

PATIENT
  Sex: Female
  Weight: 53.5 kg

DRUGS (14)
  1. CARBIDOPA\LEVODOPA [Suspect]
     Active Substance: CARBIDOPA\LEVODOPA
     Indication: Parkinson^s disease
     Route: 050
     Dates: start: 201712, end: 2019
  2. CARBIDOPA\LEVODOPA [Suspect]
     Active Substance: CARBIDOPA\LEVODOPA
     Dosage: MD 5 CRD 1.9 ML/H ED 2 ML
     Route: 050
     Dates: start: 20190318, end: 20211007
  3. L DOPA [Suspect]
     Active Substance: LEVODOPA
     Indication: Parkinson^s disease
     Route: 065
     Dates: start: 2019, end: 2019
  4. XADAGO [Concomitant]
     Active Substance: SAFINAMIDE MESYLATE
     Indication: Parkinson^s disease
     Dosage: 1 TIME DAILY
     Dates: start: 201604
  5. SIMVASTATIN [Concomitant]
     Active Substance: SIMVASTATIN
     Indication: Product used for unknown indication
     Dosage: 1 TIMES DAILY
  6. TOUJEO [Concomitant]
     Active Substance: INSULIN GLARGINE
     Indication: Product used for unknown indication
     Dosage: INSULIN?300 U/ML DAILY
  7. JANUMET [Concomitant]
     Active Substance: METFORMIN HYDROCHLORIDE\SITAGLIPTIN PHOSPHATE
     Indication: Product used for unknown indication
     Dosage: 50/1000MG (2 TIMES DAILY);
  8. BENSERAZIDE HYDROCHLORIDE\LEVODOPA [Concomitant]
     Active Substance: BENSERAZIDE HYDROCHLORIDE\LEVODOPA
     Indication: Product used for unknown indication
     Dosage: 100/25MG
  9. DULOXETINE [Concomitant]
     Active Substance: DULOXETINE
     Indication: Product used for unknown indication
  10. RAMIPRIL [Concomitant]
     Active Substance: RAMIPRIL
     Indication: Product used for unknown indication
     Dosage: 2 TIMES DAILY
  11. PK-MERZ [Concomitant]
     Active Substance: AMANTADINE
     Indication: Product used for unknown indication
     Dosage: 2 TIMES DAILY
  12. AMANTADINE [Concomitant]
     Active Substance: AMANTADINE
     Indication: Parkinson^s disease
     Dates: start: 2014
  13. ONGENTYS [Concomitant]
     Active Substance: OPICAPONE
     Indication: Product used for unknown indication
     Dosage: 1 TIMES DAILY
  14. CIPROHEXAL [Concomitant]
     Indication: Product used for unknown indication
     Dosage: 1 TIMES DAILY
     Dates: end: 20211017

REACTIONS (22)
  - Joint surgery [Unknown]
  - Morganella infection [Unknown]
  - Wound infection [Unknown]
  - Cellulitis [Unknown]
  - Stoma site inflammation [Not Recovered/Not Resolved]
  - Nocturia [Unknown]
  - Joint range of motion decreased [Unknown]
  - Glycosylated haemoglobin increased [Unknown]
  - Medical device site swelling [Unknown]
  - Medical device site warmth [Unknown]
  - Stress [Unknown]
  - Fine motor skill dysfunction [Unknown]
  - Haemoglobin decreased [Unknown]
  - Tremor [Unknown]
  - Fatigue [Unknown]
  - Fall [Recovered/Resolved]
  - Stoma site erythema [Unknown]
  - On and off phenomenon [Unknown]
  - Bradykinesia [Unknown]
  - Stoma site infection [Unknown]
  - Hyperkinesia [Unknown]
  - Stoma site discharge [Unknown]

NARRATIVE: CASE EVENT DATE: 20210101
